FAERS Safety Report 4537563-1 (Version None)
Quarter: 2004Q4

REPORT INFORMATION
  Report Type: 
  Country: None (occurrence: None)
  Receive Date: 20041223
  Receipt Date: 20041217
  Transmission Date: 20050328
  Serious: Yes (Hospitalization)
  Sender: FDA-Public Use
  Company Number: FR-MERCK-0412FRA00061

PATIENT
  Age: 72 Year
  Sex: Female

DRUGS (6)
  1. HYZAAR [Suspect]
     Indication: HYPERTENSION
     Route: 048
  2. ACEBUTOLOL HCL [Suspect]
     Route: 048
  3. INFLUENZA VIRUS SPLIT VIRION 3V VACCINE INACTIVATED [Suspect]
     Indication: PROPHYLAXIS
     Route: 058
     Dates: start: 20041007, end: 20041007
  4. PINAVERIUM BROMIDE [Concomitant]
     Route: 048
  5. GINKGO BILOBA EXTRACT [Concomitant]
     Route: 048
  6. ASPIRIN LYSINE [Concomitant]
     Route: 048

REACTIONS (1)
  - ANAEMIA HAEMOLYTIC AUTOIMMUNE [None]
